FAERS Safety Report 19654781 (Version 3)
Quarter: 2022Q1

REPORT INFORMATION
  Report Type: Spontaneous
  Country: US (occurrence: US)
  Receive Date: 20210804
  Receipt Date: 20220120
  Transmission Date: 20220423
  Serious: Yes (Hospitalization, Other)
  Sender: FDA-Public Use
  Company Number: US-GILEAD-2021-0542393

PATIENT
  Age: 46 Year
  Sex: Female
  Weight: 83.9 kg

DRUGS (52)
  1. ATRIPLA [Suspect]
     Active Substance: EFAVIRENZ\EMTRICITABINE\TENOFOVIR DISOPROXIL FUMARATE
     Indication: HIV infection
     Dosage: UNK
     Route: 048
     Dates: start: 2004
  2. ATRIPLA [Suspect]
     Active Substance: EFAVIRENZ\EMTRICITABINE\TENOFOVIR DISOPROXIL FUMARATE
     Dosage: UNK
     Route: 048
     Dates: start: 200609, end: 200912
  3. TRUVADA [Suspect]
     Active Substance: EMTRICITABINE\TENOFOVIR DISOPROXIL FUMARATE
     Indication: HIV infection
     Dosage: UNK
     Route: 048
     Dates: start: 2004
  4. TRUVADA [Suspect]
     Active Substance: EMTRICITABINE\TENOFOVIR DISOPROXIL FUMARATE
     Dosage: UNK
     Route: 048
     Dates: start: 201001, end: 201407
  5. ALBUTEROL [Concomitant]
     Active Substance: ALBUTEROL
  6. EPZICOM [Concomitant]
     Active Substance: ABACAVIR SULFATE\LAMIVUDINE
  7. NORVIR [Concomitant]
     Active Substance: RITONAVIR
  8. REYATAZ [Concomitant]
     Active Substance: ATAZANAVIR SULFATE
  9. TRIUMEQ [Concomitant]
     Active Substance: ABACAVIR SULFATE\DOLUTEGRAVIR SODIUM\LAMIVUDINE
  10. ACYCLOVIR [Concomitant]
     Active Substance: ACYCLOVIR
  11. AFLURIA NOS [Concomitant]
     Active Substance: INFLUENZA VIRUS VACCINE TRIVALENT TYPE A+B AFLURIA
  12. AMOX [AMOXICILLIN TRIHYDRATE] [Concomitant]
  13. ATORVASTATIN [Concomitant]
     Active Substance: ATORVASTATIN
  14. AZITHROMYCIN [Concomitant]
     Active Substance: AZITHROMYCIN
  15. CARISOPRODOL [Concomitant]
     Active Substance: CARISOPRODOL
  16. CEFUROXIME [Concomitant]
     Active Substance: CEFUROXIME
  17. CEPHALEXIN [Concomitant]
     Active Substance: CEPHALEXIN
  18. CYCLOBENZAPRINE [Concomitant]
     Active Substance: CYCLOBENZAPRINE
  19. DICLOFENAC [Concomitant]
     Active Substance: DICLOFENAC
  20. DICYCLOMINE [Concomitant]
     Active Substance: DICYCLOMINE HYDROCHLORIDE
  21. DOXYCYCLINE [Concomitant]
     Active Substance: DOXYCYCLINE
  22. FENOFIBRATE [Concomitant]
     Active Substance: FENOFIBRATE
  23. FLOVENT [Concomitant]
     Active Substance: FLUTICASONE PROPIONATE
  24. FLUOXETINE [Concomitant]
     Active Substance: FLUOXETINE HYDROCHLORIDE
  25. FLUTICASONE [Concomitant]
     Active Substance: FLUTICASONE
  26. VITAMIN D3 [Concomitant]
     Active Substance: CHOLECALCIFEROL
  27. GUAIFENESIN [Concomitant]
     Active Substance: GUAIFENESIN
  28. HALOBETASOL PROPIONATE [Concomitant]
     Active Substance: HALOBETASOL PROPIONATE
  29. HYDROCHLOROTHIAZIDE [Concomitant]
     Active Substance: HYDROCHLOROTHIAZIDE
  30. HYDROXYZINE [Concomitant]
     Active Substance: HYDROXYZINE HYDROCHLORIDE
  31. METHYLPREDNISOLONE [Concomitant]
     Active Substance: METHYLPREDNISOLONE
  32. METOCLOPRAMIDE [Concomitant]
     Active Substance: METOCLOPRAMIDE
  33. NYSTATIN [Concomitant]
     Active Substance: NYSTATIN
  34. OMEPRAZOLE [Concomitant]
     Active Substance: OMEPRAZOLE
  35. PHENAZOPYRIDINE [Concomitant]
     Active Substance: PHENAZOPYRIDINE
  36. HIGH DENSITY POLYETHYLENE [Concomitant]
     Active Substance: HIGH DENSITY POLYETHYLENE
  37. PREGABALIN [Concomitant]
     Active Substance: PREGABALIN
  38. PREVPAC [Concomitant]
     Active Substance: AMOXICILLIN\CLARITHROMYCIN\LANSOPRAZOLE
  39. PROMETHAZINE [Concomitant]
     Active Substance: PROMETHAZINE HYDROCHLORIDE
  40. RANITIDINE [Concomitant]
     Active Substance: RANITIDINE
  41. ROPINIROLE [Concomitant]
     Active Substance: ROPINIROLE
  42. ROSUVASTATIN [Concomitant]
     Active Substance: ROSUVASTATIN
  43. SILVER SULFADIAZINE [Concomitant]
     Active Substance: SILVER SULFADIAZINE
  44. SIMVASTATIN [Concomitant]
     Active Substance: SIMVASTATIN
  45. SUCRALFATE [Concomitant]
     Active Substance: SUCRALFATE
  46. TIVICAY [Concomitant]
     Active Substance: DOLUTEGRAVIR SODIUM
  47. TIZANIDINE [Concomitant]
     Active Substance: TIZANIDINE
  48. TOBRAMYCIN [Concomitant]
     Active Substance: TOBRAMYCIN
  49. TRIAMCINOLONE [Concomitant]
     Active Substance: TRIAMCINOLONE
  50. WELCHOL [Concomitant]
     Active Substance: COLESEVELAM HYDROCHLORIDE
  51. ZOLPIDEM [Concomitant]
     Active Substance: ZOLPIDEM TARTRATE
  52. MELOXICAM [Concomitant]
     Active Substance: MELOXICAM

REACTIONS (10)
  - Osteoporosis [Not Recovered/Not Resolved]
  - Bone density decreased [Unknown]
  - Emotional distress [Not Recovered/Not Resolved]
  - Anhedonia [Not Recovered/Not Resolved]
  - Anxiety [Not Recovered/Not Resolved]
  - Pain [Not Recovered/Not Resolved]
  - Renal impairment [Not Recovered/Not Resolved]
  - Osteopenia [Not Recovered/Not Resolved]
  - Asthenia [Unknown]
  - Fatigue [Unknown]

NARRATIVE: CASE EVENT DATE: 20110401
